FAERS Safety Report 4928585-7 (Version None)
Quarter: 2006Q1

REPORT INFORMATION
  Report Type: 
  Country: None (occurrence: None)
  Receive Date: 20060223
  Receipt Date: 20060131
  Transmission Date: 20060701
  Serious: Yes (Other)
  Sender: FDA-Public Use
  Company Number: US200602000273

PATIENT
  Sex: Male

DRUGS (8)
  1. HUMULIN 70/30 [Suspect]
     Indication: DIABETES MELLITUS
     Dates: start: 20050101, end: 20060129
  2. HUMULIN 70/30 PEN (HUMULIN 70/30 PEN) PEN, DISPOSABLE [Concomitant]
  3. HUMALOG [Concomitant]
  4. LANTUS [Concomitant]
  5. GLUCOPHAGE [Concomitant]
  6. DIOVAN [Concomitant]
  7. LOPRESSOR [Concomitant]
  8. NORVASC [Concomitant]

REACTIONS (3)
  - BLINDNESS UNILATERAL [None]
  - CATARACT [None]
  - WEIGHT DECREASED [None]
